FAERS Safety Report 8773757 (Version 1)
Quarter: 2012Q4

REPORT INFORMATION
  Report Type: 
  Country: BR (occurrence: BR)
  Receive Date: 20120907
  Receipt Date: 20120907
  Transmission Date: 20130627
  Serious: Yes (Other)
  Sender: FDA-Public Use
  Company Number: BR-PFIZER INC-2012219827

PATIENT
  Age: 52 Year
  Sex: Female

DRUGS (2)
  1. LYRICA [Suspect]
     Indication: BACK PAIN
     Dosage: unspecified dosage, twice a day
     Route: 048
     Dates: start: 2007
  2. GABANEURIN [Concomitant]
     Dosage: UNK
     Dates: start: 2007

REACTIONS (2)
  - Spinal cord compression [Unknown]
  - Spinal column injury [Unknown]
